FAERS Safety Report 7281638-3 (Version None)
Quarter: 2011Q1

REPORT INFORMATION
  Report Type: 
  Country: None (occurrence: None)
  Receive Date: 20110208
  Receipt Date: 20110126
  Transmission Date: 20110831
  Serious: Yes (Other)
  Sender: FDA-Public Use
  Company Number: CA-ELI_LILLY_AND_COMPANY-CA201101006442

PATIENT
  Sex: Female

DRUGS (13)
  1. SYNTHROID [Concomitant]
  2. IMOVANE [Concomitant]
  3. ZYPREXA [Suspect]
     Dosage: 2.5 MG, EACH EVENING
     Route: 048
     Dates: start: 20070725
  4. STARNOC [Concomitant]
     Dosage: 10 MG, EACH EVENING
     Route: 048
  5. ATIVAN [Concomitant]
  6. EPIVAL [Concomitant]
     Dosage: 500 MG, EACH EVENING
  7. ZOCOR [Concomitant]
  8. LITHIUM CARBONATE [Concomitant]
     Indication: BIPOLAR I DISORDER
  9. HALDOL [Concomitant]
     Dates: end: 20020101
  10. CRESTOR [Concomitant]
  11. EPIVAL [Concomitant]
     Dosage: 250 MG, EACH MORNING
  12. ZYPREXA [Suspect]
     Dosage: 5 MG, UNK
     Dates: end: 20070725
  13. LIPITOR [Concomitant]

REACTIONS (14)
  - CELLULITIS [None]
  - HYPOTHYROIDISM [None]
  - TREMOR [None]
  - HYPERTRIGLYCERIDAEMIA [None]
  - WEIGHT INCREASED [None]
  - DRUG INTERACTION [None]
  - GLUCOSE TOLERANCE IMPAIRED [None]
  - HYPERTENSION [None]
  - HEPATIC STEATOSIS [None]
  - OSTEITIS [None]
  - TYPE 2 DIABETES MELLITUS [None]
  - METABOLIC SYNDROME [None]
  - OBESITY [None]
  - HYPERCHOLESTEROLAEMIA [None]
